FAERS Safety Report 9158353 (Version 1)
Quarter: 2013Q1

REPORT INFORMATION
  Report Type: Spontaneous
  Country: IT (occurrence: IT)
  Receive Date: 20130312
  Receipt Date: 20130312
  Transmission Date: 20140127
  Serious: Yes (Hospitalization)
  Sender: FDA-Public Use
  Company Number: IT-TEVA-389850ISR

PATIENT
  Age: 22 Year
  Sex: Female

DRUGS (3)
  1. FLUOXETINE [Suspect]
     Dosage: 840 MILLIGRAM DAILY;
     Route: 048
     Dates: start: 20130128, end: 20130128
  2. INDERAL [Concomitant]
     Dosage: 40 MG
  3. GABAPENTINA ABC [Concomitant]
     Dosage: 10 MG

REACTIONS (3)
  - Drug abuse [Recovered/Resolved]
  - Nausea [Recovered/Resolved]
  - Abdominal pain [Recovered/Resolved]
